FAERS Safety Report 13041926 (Version 1)
Quarter: 2016Q4

REPORT INFORMATION
  Report Type: Spontaneous
  Country: US (occurrence: US)
  Receive Date: 20161219
  Receipt Date: 20161219
  Transmission Date: 20170207
  Serious: No
  Sender: FDA-Public Use
  Company Number: US-ROCHE-1182018

PATIENT
  Sex: Female

DRUGS (1)
  1. ZELBORAF [Suspect]
     Active Substance: VEMURAFENIB
     Indication: PRODUCT USED FOR UNKNOWN INDICATION
     Route: 065

REACTIONS (12)
  - Asthenia [Unknown]
  - Nausea [Unknown]
  - Acne [Unknown]
  - Erythema [Unknown]
  - Joint swelling [Unknown]
  - Gait disturbance [Unknown]
  - Frequent bowel movements [Unknown]
  - Vomiting [Unknown]
  - Fatigue [Unknown]
  - Skin exfoliation [Unknown]
  - Peripheral swelling [Unknown]
  - Pain in extremity [Unknown]
